FAERS Safety Report 12343653 (Version 1)
Quarter: 2016Q2

REPORT INFORMATION
  Report Type: Spontaneous
  Country: US (occurrence: US)
  Receive Date: 20160506
  Receipt Date: 20160506
  Transmission Date: 20160815
  Serious: Yes (Other)
  Sender: FDA-Public Use
  Company Number: US-ALLERGAN-1655767US

PATIENT
  Age: 59 Year
  Sex: Female

DRUGS (1)
  1. REFRESH PLUS [Suspect]
     Active Substance: CARBOXYMETHYLCELLULOSE SODIUM
     Indication: VISION BLURRED
     Route: 047

REACTIONS (6)
  - Cataract [Unknown]
  - Neoplasm malignant [Unknown]
  - Vision blurred [Not Recovered/Not Resolved]
  - Knee arthroplasty [Unknown]
  - Off label use [Unknown]
  - Cardiac disorder [Unknown]
